FAERS Safety Report 19517129 (Version 1)
Quarter: 2021Q3

REPORT INFORMATION
  Report Type: Spontaneous
  Country: DE (occurrence: DE)
  Receive Date: 20210712
  Receipt Date: 20210712
  Transmission Date: 20211014
  Serious: Yes (Hospitalization)
  Sender: FDA-Public Use
  Company Number: DE-AUROBINDO-AUR-APL-2021-028088

PATIENT
  Age: 84 Year
  Sex: Male

DRUGS (10)
  1. ENALAPRIL [Suspect]
     Active Substance: ENALAPRIL
     Indication: PRODUCT USED FOR UNKNOWN INDICATION
     Dosage: 10 MILLIGRAM(10 MG, 1?0?1?0, TABLETTEN)
     Route: 048
  2. LERCANIDIPINE [Concomitant]
     Active Substance: LERCANIDIPINE
     Indication: PRODUCT USED FOR UNKNOWN INDICATION
     Dosage: 10 MILLIGRAM(10 MG, 2?0?0?0, TABLETTEN)
     Route: 048
  3. MINOXIDIL. [Concomitant]
     Active Substance: MINOXIDIL
     Indication: PRODUCT USED FOR UNKNOWN INDICATION
     Dosage: 2.5 MILLIGRAM(2.5 MG, 1?0?1?0, TABLETTEN)
     Route: 048
  4. METFORMIN FILM?COATED TABLET [Suspect]
     Active Substance: METFORMIN HYDROCHLORIDE
     Indication: PRODUCT USED FOR UNKNOWN INDICATION
     Dosage: 1000 MILLIGRAM(1000 MG, 1?0?0.5?0, TABLETTEN)
     Route: 048
  5. ACETYLSALICYLIC ACID [Suspect]
     Active Substance: ASPIRIN
     Indication: PRODUCT USED FOR UNKNOWN INDICATION
     Dosage: 100 MILLIGRAM(100 MG, 0?1?0?0, TABLETTEN)
     Route: 048
  6. HYDROCHLOROTHIAZIDE;METOPROLOL [Suspect]
     Active Substance: HYDROCHLOROTHIAZIDE\METOPROLOL
     Indication: PRODUCT USED FOR UNKNOWN INDICATION
     Dosage: 12.5|95 MG, 1?0?0?0, DELAY?TABLETTEN
     Route: 048
  7. TORASEMIDE [Suspect]
     Active Substance: TORSEMIDE
     Indication: PRODUCT USED FOR UNKNOWN INDICATION
     Dosage: 10 MILLIGRAM(10 MG, 1?0?0?0, TABLETTEN)
     Route: 048
  8. DOXAZOSIN [Concomitant]
     Active Substance: DOXAZOSIN MESYLATE
     Indication: PRODUCT USED FOR UNKNOWN INDICATION
     Dosage: 4 MILLIGRAM(4 MG, 1?0?0?0, TABLETTEN)
     Route: 048
  9. PREGABALIN CAPSULES, HARD [Suspect]
     Active Substance: PREGABALIN
     Indication: PRODUCT USED FOR UNKNOWN INDICATION
     Dosage: 75 MILLIGRAM(75 MG, 1?0?1?0, CAPSULE)
     Route: 048
  10. EPLERENONE. [Suspect]
     Active Substance: EPLERENONE
     Indication: PRODUCT USED FOR UNKNOWN INDICATION
     Dosage: 25 MILLIGRAM(25 MG, 0?1?0?0, TABLETTEN)
     Route: 048

REACTIONS (3)
  - Paraesthesia [Recovering/Resolving]
  - Hypoaesthesia [Recovering/Resolving]
  - Muscular weakness [Recovering/Resolving]
